FAERS Safety Report 7689069-9 (Version None)
Quarter: 2011Q3

REPORT INFORMATION
  Report Type: 
  Country: None (occurrence: None)
  Receive Date: 20110817
  Receipt Date: 20110811
  Transmission Date: 20111222
  Serious: Yes (Hospitalization, Other)
  Sender: FDA-Public Use
  Company Number: BR-MERCK-1108BRA00054

PATIENT
  Sex: Female
  Weight: 70 kg

DRUGS (9)
  1. DOMPERIDONE [Concomitant]
     Indication: GASTRIC DISORDER
     Route: 065
  2. ESOMEPRAZOLE MAGNESIUM [Concomitant]
     Indication: GASTRIC DISORDER
     Route: 065
  3. BISOPROLOL FUMARATE [Concomitant]
     Indication: CARDIAC FAILURE
     Route: 065
     Dates: start: 20050101
  4. JANUMET [Suspect]
     Indication: DIABETES MELLITUS
     Route: 048
     Dates: start: 20110101, end: 20110101
  5. INSULIN [Concomitant]
     Indication: DIABETES MELLITUS
     Route: 065
     Dates: start: 20010101
  6. CANDESARTAN CILEXETIL [Concomitant]
     Indication: CARDIAC FAILURE
     Route: 065
     Dates: start: 20050101
  7. ROSUVASTATIN CALCIUM [Concomitant]
     Indication: HYPERCHOLESTEROLAEMIA
     Route: 065
  8. CLOPIDOGREL BISULFATE [Concomitant]
     Indication: CARDIAC FAILURE
     Route: 065
     Dates: start: 20050101
  9. GALANTAMINE HYDROBROMIDE [Concomitant]
     Indication: DEMENTIA ALZHEIMER'S TYPE
     Route: 065

REACTIONS (2)
  - CARDIAC FAILURE [None]
  - RENAL FAILURE ACUTE [None]
